FAERS Safety Report 7185905-3 (Version None)
Quarter: 2010Q4

REPORT INFORMATION
  Report Type: 
  Country: None (occurrence: None)
  Receive Date: 20101222
  Receipt Date: 20101213
  Transmission Date: 20110411
  Serious: Yes (Hospitalization)
  Sender: FDA-Public Use
  Company Number: PHHY2010RU85841

PATIENT
  Age: 15 Year
  Sex: Male
  Weight: 60 kg

DRUGS (5)
  1. CYCLOSPORINE [Suspect]
     Indication: APLASTIC ANAEMIA
     Dosage: 150 MG
     Route: 048
     Dates: start: 20100323
  2. CALCIUM GLUCONATE [Concomitant]
     Dosage: UNK
     Dates: start: 20100323, end: 20100426
  3. VITAMIN B6 [Concomitant]
     Dosage: UNK
     Dates: start: 20100323, end: 20100426
  4. MAGNESIUM [Concomitant]
     Dosage: UNK
     Dates: start: 20100323, end: 20100426
  5. METHYLPREDNISOLONE [Concomitant]

REACTIONS (6)
  - DECREASED APPETITE [None]
  - DRUG INEFFECTIVE [None]
  - GENERAL PHYSICAL HEALTH DETERIORATION [None]
  - HEPATOMEGALY [None]
  - LEUKOPENIA [None]
  - THROMBOCYTOPENIA [None]
